FAERS Safety Report 22356048 (Version 1)
Quarter: 2023Q2

REPORT INFORMATION
  Report Type: Report from Study
  Country: ES (occurrence: ES)
  Receive Date: 20230523
  Receipt Date: 20230523
  Transmission Date: 20230721
  Serious: Yes (Hospitalization, Other)
  Sender: FDA-Public Use
  Company Number: ES-JNJFOC-20211244659

PATIENT
  Age: 41 Year
  Sex: Female
  Weight: 111 kg

DRUGS (9)
  1. TRABECTEDIN [Suspect]
     Active Substance: TRABECTEDIN
     Indication: Pleomorphic liposarcoma
     Route: 065
     Dates: start: 20211029
  2. TRABECTEDIN [Suspect]
     Active Substance: TRABECTEDIN
     Route: 065
     Dates: start: 20211102
  3. TRABECTEDIN [Suspect]
     Active Substance: TRABECTEDIN
     Route: 042
     Dates: start: 20211229, end: 20220301
  4. TRABECTEDIN [Suspect]
     Active Substance: TRABECTEDIN
     Route: 042
     Dates: start: 20211221
  5. ALBUTEROL [Concomitant]
     Active Substance: ALBUTEROL
     Indication: Asthma
     Route: 065
  6. OMEPRAZOLE [Concomitant]
     Active Substance: OMEPRAZOLE
     Indication: Gastrointestinal disorder therapy
     Route: 065
  7. DEXAMETHASONE [Concomitant]
     Active Substance: DEXAMETHASONE
     Indication: Premedication
     Route: 065
  8. ONDANSETRON [Concomitant]
     Active Substance: ONDANSETRON
     Indication: Premedication
     Route: 065
  9. TINZAPARIN [Concomitant]
     Active Substance: TINZAPARIN
     Indication: Deep vein thrombosis
     Route: 065

REACTIONS (3)
  - Infusion site extravasation [Recovered/Resolved]
  - Cellulitis [Recovered/Resolved]
  - Venous thrombosis [Unknown]

NARRATIVE: CASE EVENT DATE: 20211201
